FAERS Safety Report 15950594 (Version 1)
Quarter: 2019Q1

REPORT INFORMATION
  Report Type: Spontaneous
  Country: FR (occurrence: FR)
  Receive Date: 20190211
  Receipt Date: 20190211
  Transmission Date: 20190417
  Serious: Yes (Life-Threatening, Hospitalization)
  Sender: FDA-Public Use
  Company Number: FR-PFIZER INC-2019057194

PATIENT
  Age: 34 Year
  Sex: Male
  Weight: 67 kg

DRUGS (1)
  1. CHAMPIX [Suspect]
     Active Substance: VARENICLINE TARTRATE
     Indication: TOBACCO ABUSE
     Dosage: UNK
     Route: 048
     Dates: start: 20181213, end: 20190108

REACTIONS (2)
  - Suicide attempt [Recovering/Resolving]
  - Hanging [Recovering/Resolving]

NARRATIVE: CASE EVENT DATE: 20190108
